FAERS Safety Report 10645221 (Version 1)
Quarter: 2014Q4

REPORT INFORMATION
  Report Type: Spontaneous
  Country: GB (occurrence: GB)
  Receive Date: 20141211
  Receipt Date: 20141211
  Transmission Date: 20150529
  Serious: Yes (Hospitalization, Other)
  Sender: FDA-Public Use
  Company Number: GB-JNJFOC-20141203335

PATIENT
  Age: 8 Year
  Sex: Male
  Weight: 25.4 kg

DRUGS (2)
  1. CALPOL [Suspect]
     Active Substance: ACETAMINOPHEN
     Route: 048
  2. CALPOL [Suspect]
     Active Substance: ACETAMINOPHEN
     Indication: PYREXIA
     Route: 048
     Dates: start: 20141123, end: 20141123

REACTIONS (5)
  - Somnambulism [Recovered/Resolved]
  - Screaming [Recovered/Resolved]
  - Sleep terror [Recovered/Resolved]
  - Visual impairment [Recovered/Resolved]
  - Hallucination [Recovered/Resolved]

NARRATIVE: CASE EVENT DATE: 20141123
